FAERS Safety Report 4444675-X (Version None)
Quarter: 2004Q3

REPORT INFORMATION
  Report Type: 
  Country: None (occurrence: None)
  Receive Date: 20040903
  Receipt Date: 20040826
  Transmission Date: 20050211
  Serious: Yes (Death)
  Sender: FDA-Public Use
  Company Number: 2004-BP-07314RO

PATIENT
  Sex: Female

DRUGS (1)
  1. AZATHIOPRINE [Suspect]
     Indication: IMMUNOSUPPRESSION
     Dosage: 100 MG DAILY (50 MG), PO
     Route: 048
     Dates: start: 19890101, end: 19991201

REACTIONS (7)
  - BLAST CELL PROLIFERATION [None]
  - CHROMOSOMAL MUTATION [None]
  - ERYTHROPOIESIS ABNORMAL [None]
  - HAEMORRHAGE [None]
  - NEUTROPHIL PELGER-HUET ANOMALY PRESENT [None]
  - PANCYTOPENIA [None]
  - REFRACTORY ANAEMIA [None]
